FAERS Safety Report 8523155 (Version 3)
Quarter: 2012Q4

REPORT INFORMATION
  Report Type: Report from Study
  Country: CA (occurrence: CA)
  Receive Date: 20120420
  Receipt Date: 20120925
  Transmission Date: 20130627
  Serious: Yes (Other)
  Sender: FDA-Public Use
  Company Number: CA-UCBSA-049306

PATIENT
  Age: 55 Year
  Sex: Female
  Weight: 81.8 kg

DRUGS (5)
  1. CIMZIA [Suspect]
     Indication: RHEUMATOID ARTHRITIS
     Dosage: NO. OF INTAKES: EVERY 2 WEEKS X3
     Route: 058
     Dates: start: 20110521, end: 20110618
  2. CIMZIA [Suspect]
     Indication: RHEUMATOID ARTHRITIS
     Route: 058
     Dates: start: 20110702
  3. ATACAND [Concomitant]
     Indication: BLOOD PRESSURE
     Route: 048
  4. HCTZ [Concomitant]
     Indication: BLOOD PRESSURE
     Route: 048
  5. MYLAN-AMLODIPINE [Concomitant]
     Dosage: AT BEDTIME
     Route: 048

REACTIONS (5)
  - Mass [Not Recovered/Not Resolved]
  - Gastrooesophageal reflux disease [Unknown]
  - Rheumatoid nodule [Unknown]
  - Arthralgia [Not Recovered/Not Resolved]
  - Sinusitis [Recovering/Resolving]
